FAERS Safety Report 6874552-6 (Version None)
Quarter: 2010Q3

REPORT INFORMATION
  Report Type: 
  Country: None (occurrence: None)
  Receive Date: 20100722
  Receipt Date: 20100716
  Transmission Date: 20110219
  Serious: Yes (Life-Threatening, Hospitalization)
  Sender: FDA-Public Use
  Company Number: WAES 1005USA00530

PATIENT
  Age: 69 Year
  Sex: Male

DRUGS (9)
  1. ZOCOR [Suspect]
     Indication: ACUTE CORONARY SYNDROME
     Dosage: 40 MG/DAILY
     Route: 048
     Dates: start: 20070501
  2. PLACEBO (UNSPECIFIED) [Suspect]
     Indication: ACUTE CORONARY SYNDROME
     Dosage: 1 TAB/DAILY
     Route: 048
     Dates: start: 20070501
  3. TAB PLACEBO (UNSPECIFIED) [Suspect]
     Indication: ACUTE CORONARY SYNDROME
     Dosage: 1 TAB/DAILY
     Route: 048
     Dates: start: 20070501
  4. TOP GTN (NITROGLYCERIN) [Suspect]
     Dosage: TOP
     Route: 061
     Dates: start: 20100103
  5. ASPIRIN [Suspect]
     Dosage: 75 MG/DAILY
     Route: 048
     Dates: start: 20060417
  6. AMLODIPINE [Concomitant]
  7. CLOPIDOGREL BISULFALTE [Concomitant]
  8. NICORANDIL [Concomitant]
  9. RAMIPRIL [Concomitant]

REACTIONS (4)
  - ANAEMIA [None]
  - DIZZINESS POSTURAL [None]
  - PNEUMONIA [None]
  - UPPER GASTROINTESTINAL HAEMORRHAGE [None]
